FAERS Safety Report 8308236-4 (Version None)
Quarter: 2012Q2

REPORT INFORMATION
  Report Type: 
  Country: None (occurrence: None)
  Receive Date: 20120424
  Receipt Date: 20120410
  Transmission Date: 20120825
  Serious: Yes (Death)
  Sender: FDA-Public Use
  Company Number: US-WATSON-2012-05024

PATIENT
  Age: 45 Year
  Sex: Female

DRUGS (1)
  1. METOCLOPRAMIDE INJECTION [Suspect]
     Indication: NAUSEA
     Dosage: UNK
     Route: 065

REACTIONS (2)
  - PHAEOCHROMOCYTOMA CRISIS [None]
  - CARDIOGENIC SHOCK [None]
